FAERS Safety Report 6072897-3 (Version None)
Quarter: 2009Q1

REPORT INFORMATION
  Report Type: 
  Country: None (occurrence: None)
  Receive Date: 20090205
  Receipt Date: 20090126
  Transmission Date: 20090719
  Serious: Yes (Other)
  Sender: FDA-Public Use
  Company Number: STI-2009-00120

PATIENT
  Sex: Male

DRUGS (2)
  1. ERYTHROMYCIN [Suspect]
  2. AMLODIPINE BESYLATE [Suspect]
     Dosage: ORAL
     Route: 048

REACTIONS (2)
  - DRUG INTERACTION [None]
  - SYNCOPE [None]
